FAERS Safety Report 10036868 (Version 1)
Quarter: 2014Q1

REPORT INFORMATION
  Report Type: Spontaneous
  Country: US (occurrence: US)
  Receive Date: 20140326
  Receipt Date: 20140326
  Transmission Date: 20141002
  Serious: No
  Sender: FDA-Public Use
  Company Number: US-BIOGENIDEC-2014BI025319

PATIENT
  Age: 55 Year
  Sex: Male

DRUGS (6)
  1. METOPROLOL SUCCINATE ER [Concomitant]
  2. TECFIDERA [Suspect]
     Indication: MULTIPLE SCLEROSIS
     Route: 048
     Dates: start: 20140212
  3. SIMVASTATIN [Concomitant]
  4. OXYCODONE HCI [Concomitant]
  5. NITROGLYCERIN [Concomitant]
  6. LISINOPRIL [Concomitant]

REACTIONS (3)
  - Paraesthesia [Unknown]
  - Hypoaesthesia [Unknown]
  - Burning sensation [Unknown]
